FAERS Safety Report 8987196 (Version 1)
Quarter: 2012Q4

REPORT INFORMATION
  Report Type: 
  Country: ES (occurrence: ES)
  Receive Date: 20121226
  Receipt Date: 20121226
  Transmission Date: 20130627
  Serious: Yes (Other)
  Sender: FDA-Public Use
  Company Number: ES-ALLERGAN-1217702US

PATIENT
  Age: 37 Year
  Sex: Male

DRUGS (4)
  1. BOTOX [Suspect]
     Indication: ARM SPASTICITY
     Dosage: 200 UNITS, single
     Dates: start: 20121207, end: 20121207
  2. BACLOFEN [Concomitant]
     Indication: DRUG USE FOR UNKNOWN INDICATION
     Dosage: UNK
     Dates: start: 20121010
  3. AMITRIPTYLINE [Concomitant]
     Indication: DRUG USE FOR UNKNOWN INDICATION
     Dosage: UNK
     Dates: start: 20121010
  4. FESOTERODINE [Concomitant]
     Indication: DRUG USE FOR UNKNOWN INDICATION
     Dosage: UNK
     Dates: start: 20121010

REACTIONS (3)
  - Respiratory failure [Unknown]
  - Atelectasis [Unknown]
  - Cough [Unknown]
